FAERS Safety Report 14930751 (Version 1)
Quarter: 2018Q2

REPORT INFORMATION
  Report Type: Spontaneous
  Country: DE (occurrence: DE)
  Receive Date: 20180523
  Receipt Date: 20180523
  Transmission Date: 20180711
  Serious: Yes (Death, Hospitalization)
  Sender: FDA-Public Use
  Company Number: PHHY2014DE185075

PATIENT
  Age: 65 Year
  Sex: Male
  Weight: 60 kg

DRUGS (15)
  1. ALLOPURINOL. [Concomitant]
     Active Substance: ALLOPURINOL
     Indication: HYPERURICAEMIA
     Route: 065
  2. NOVAMINSULFON [Concomitant]
     Active Substance: METAMIZOLE
     Indication: MUSCULOSKELETAL PAIN
     Route: 065
  3. FILGRASTIM [Suspect]
     Active Substance: FILGRASTIM
     Indication: LEUKOPENIA
     Route: 065
  4. KALIUMIODID BC [Concomitant]
     Indication: PRODUCT USED FOR UNKNOWN INDICATION
     Route: 065
  5. IRINOTECAN [Concomitant]
     Active Substance: IRINOTECAN
     Dosage: 130 MG, QW (SUBSEQUENT DOSES ON 11/JUL/2013, 01/AUG/2013)
     Route: 042
     Dates: start: 20130704
  6. BEVACIZUMAB. [Suspect]
     Active Substance: BEVACIZUMAB
     Dosage: 437.5 MG, UNK
     Route: 042
  7. BEVACIZUMAB. [Suspect]
     Active Substance: BEVACIZUMAB
     Indication: COLORECTAL CANCER METASTATIC
     Dosage: 450 MG,
     Route: 042
  8. CAPECITABINE. [Suspect]
     Active Substance: CAPECITABINE
     Dosage: 2000 MG, CYCLIC (FOR 14 DAYS OF A 3 WEEK CYCLE)
     Route: 048
  9. BUDESONID [Concomitant]
     Active Substance: BUDESONIDE
     Indication: CHRONIC OBSTRUCTIVE PULMONARY DISEASE
     Route: 065
  10. ASPIRIN. [Concomitant]
     Active Substance: ASPIRIN
     Indication: HYPERTENSION
     Route: 065
  11. CAPECITABINE. [Suspect]
     Active Substance: CAPECITABINE
     Indication: COLORECTAL CANCER
     Dosage: 2500 MG, CYCLIC (FOR 14 DAYS OF A 3 WEEK CYCLE)
     Route: 048
  12. RAMIPRIL. [Concomitant]
     Active Substance: RAMIPRIL
     Indication: HYPERTENSION
     Route: 065
  13. ZOLEDRONIC ACID [Concomitant]
     Active Substance: ZOLEDRONIC ACID
     Indication: METASTASES TO BONE
     Dosage: 1 DF, QMO
     Route: 065
     Dates: start: 20130628, end: 20131219
  14. FORMOTEROL [Concomitant]
     Active Substance: FORMOTEROL
     Indication: BRONCHOSPASM
     Route: 065
  15. IRINOTECAN [Concomitant]
     Active Substance: IRINOTECAN
     Indication: COLORECTAL CANCER
     Dosage: 100 MG, QW (SUBSEQUENT DOSES ON 15/AUG/2013, 22/AUG/2013, 05/SEP/2013, 12/SEP/2013, 26/SEP/2013, 17/
     Route: 042
     Dates: start: 20130725

REACTIONS (4)
  - Tracheal haemorrhage [Fatal]
  - Erosive oesophagitis [Fatal]
  - Malignant neoplasm progression [Fatal]
  - Oesophageal haemorrhage [Fatal]

NARRATIVE: CASE EVENT DATE: 20140101
